FAERS Safety Report 6256008-7 (Version None)
Quarter: 2009Q3

REPORT INFORMATION
  Report Type: 
  Country: None (occurrence: None)
  Receive Date: 20090706
  Receipt Date: 20090626
  Transmission Date: 20100115
  Serious: Yes (Other)
  Sender: FDA-Public Use
  Company Number: DE-WYE-H09868509

PATIENT
  Sex: Male

DRUGS (1)
  1. CORDAREX [Suspect]
     Dosage: UNSPECIFIED
     Route: 048

REACTIONS (1)
  - MACULOPATHY [None]
